FAERS Safety Report 7522579-3 (Version None)
Quarter: 2011Q2

REPORT INFORMATION
  Report Type: 
  Country: None (occurrence: None)
  Receive Date: 20110525
  Receipt Date: 20110516
  Transmission Date: 20111010
  Serious: Yes (Death, Hospitalization)
  Sender: FDA-Public Use
  Company Number: NSR_00229_2011

PATIENT
  Age: 52 Year
  Sex: Male

DRUGS (1)
  1. VENLAFAXINE [Suspect]
     Indication: PRODUCT USED FOR UNKNOWN INDICATION
     Dosage: (INGESTED AN UNKNOWN QUANTITY ORAL)
     Route: 048

REACTIONS (15)
  - HYPERREFLEXIA [None]
  - DRUG ABUSE [None]
  - INTENTIONAL SELF-INJURY [None]
  - INCORRECT DOSE ADMINISTERED [None]
  - ELECTROCARDIOGRAM QRS COMPLEX PROLONGED [None]
  - RESPIRATORY RATE INCREASED [None]
  - CONFUSIONAL STATE [None]
  - CARDIAC ARREST [None]
  - LACERATION [None]
  - BLOOD PRESSURE INCREASED [None]
  - SINUS TACHYCARDIA [None]
  - CONVULSION [None]
  - TOXICITY TO VARIOUS AGENTS [None]
  - ELECTROCARDIOGRAM QT PROLONGED [None]
  - CLONUS [None]
